FAERS Safety Report 9502416 (Version 1)
Quarter: 2013Q3

REPORT INFORMATION
  Report Type: Spontaneous
  Country: US (occurrence: US)
  Receive Date: 20130906
  Receipt Date: 20130906
  Transmission Date: 20140515
  Serious: Yes (Hospitalization, Other)
  Sender: FDA-Public Use
  Company Number: US-AMGEN-USASP2013062187

PATIENT
  Age: 70 Year
  Sex: Female

DRUGS (5)
  1. PEGFILGRASTIM [Suspect]
     Indication: BREAST CANCER
     Dosage: 6 MG, ON DAY 2
     Route: 058
     Dates: start: 20080612
  2. BEVACIZUMAB [Suspect]
     Indication: BREAST CANCER
     Dosage: UNK UNK,  GIVEN OVER 30-90 MINS ON DAY 1 OF EACH 21 DAY CYCLE (CYCLE 1-8) 1 IN 21 D
     Route: 042
     Dates: start: 20080612
  3. DOXORUBICIN HYDROCHLORIDE [Suspect]
     Indication: BREAST CANCER
     Dosage: 60 MG/M2, GIVEN AS IVP ON DAY 1 OF EACH 21 DAY CYCLE (CYCLE 1-4) 1 IN 21 D
     Route: 042
     Dates: start: 20080612
  4. CYCLOPHOSPHAMIDE [Suspect]
     Indication: BREAST CANCER
     Dosage: 600 MG/M2, GIVEN OVER 20-30 MINS ON DAY 1 OF EACH 21 DAY CYCLE (CYCLE 1-4) 1 IN 21 D
     Route: 042
     Dates: start: 20080612
  5. PACLITAXEL [Suspect]
     Indication: BREAST CANCER
     Dosage: 80 MG/M2, OVER 1 HR ON DAYS 1, 8 AND 15
     Route: 042
     Dates: start: 20080612

REACTIONS (3)
  - Neutrophil count decreased [Recovered/Resolved]
  - Dyspnoea [Unknown]
  - Pneumonitis [Unknown]
